FAERS Safety Report 8827565 (Version 2)
Quarter: 2012Q4

REPORT INFORMATION
  Report Type: 
  Country: AU (occurrence: CN)
  Receive Date: 20121005
  Receipt Date: 20121120
  Transmission Date: 20130627
  Serious: Yes (Other)
  Sender: FDA-Public Use
  Company Number: CN-ALLERGAN-1213589US

PATIENT
  Age: 22 Year
  Sex: Male

DRUGS (2)
  1. PREDNISOLONE (UNKNOWN) [Suspect]
     Indication: POSTOPERATIVE CARE
     Dosage: every 4 hours
     Route: 047
  2. CHLORAMPHENICOL [Suspect]
     Indication: POSTOPERATIVE CARE
     Dosage: four times a day

REACTIONS (10)
  - Herpes simplex ophthalmic [Recovered/Resolved]
  - Corneal graft rejection [Recovered/Resolved]
  - Anterior chamber cell [Recovered/Resolved]
  - Visual acuity reduced [Recovering/Resolving]
  - Corneal oedema [Recovered/Resolved]
  - Corneal epithelium defect [Recovered/Resolved]
  - Anterior chamber flare [Recovered/Resolved]
  - Eye pain [Unknown]
  - Headache [Not Recovered/Not Resolved]
  - Intraocular pressure increased [Recovered/Resolved]
